FAERS Safety Report 18055204 (Version 1)
Quarter: 2020Q3

REPORT INFORMATION
  Report Type: Spontaneous
  Country: FR (occurrence: FR)
  Receive Date: 20200722
  Receipt Date: 20200722
  Transmission Date: 20201103
  Serious: Yes (Other)
  Sender: FDA-Public Use
  Company Number: FR-MYLANLABS-2020M1065668

PATIENT
  Age: 72 Year
  Sex: Male

DRUGS (4)
  1. LIPIODOL [Concomitant]
     Active Substance: ETHIODIZED OIL
     Indication: THERAPEUTIC EMBOLISATION
     Dosage: UNK
     Route: 065
  2. DOXORUBICIN [Suspect]
     Active Substance: DOXORUBICIN
     Indication: THERAPEUTIC EMBOLISATION
  3. REGORAFENIB. [Suspect]
     Active Substance: REGORAFENIB
     Indication: MIXED HEPATOCELLULAR CHOLANGIOCARCINOMA
     Dosage: LOWER DOSE
     Route: 065
     Dates: start: 201806
  4. DOXORUBICIN [Suspect]
     Active Substance: DOXORUBICIN
     Indication: MIXED HEPATOCELLULAR CHOLANGIOCARCINOMA
     Dosage: 50 MILLIGRAM
     Route: 065

REACTIONS (1)
  - Treatment failure [Unknown]
